FAERS Safety Report 5545993-4 (Version None)
Quarter: 2007Q4

REPORT INFORMATION
  Report Type: 
  Country: None (occurrence: None)
  Receive Date: 20071211
  Receipt Date: 20071126
  Transmission Date: 20080405
  Serious: Yes (Death, Other)
  Sender: FDA-Public Use
  Company Number: GB-BAYER-200717265GPV

PATIENT
  Age: 25 Year
  Sex: Male

DRUGS (5)
  1. ALEMTUZUMAB [Suspect]
     Indication: BONE MARROW CONDITIONING REGIMEN
  2. FLUDARABINE PHOSPHATE [Suspect]
     Indication: BONE MARROW CONDITIONING REGIMEN
  3. MELPHALAN [Suspect]
     Indication: BONE MARROW CONDITIONING REGIMEN
  4. CYCLOSPORINE [Suspect]
     Indication: IMMUNOSUPPRESSION
  5. RITUXIMAB [Suspect]
     Indication: LYMPHOPROLIFERATIVE DISORDER

REACTIONS (16)
  - ALVEOLITIS FIBROSING [None]
  - ANAEMIA [None]
  - ASCITES [None]
  - CRYPTOGENIC ORGANISING PNEUMONIA [None]
  - FEBRILE NEUTROPENIA [None]
  - GASTROINTESTINAL HAEMORRHAGE [None]
  - HEPATIC CIRRHOSIS [None]
  - MELAENA [None]
  - NODULAR REGENERATIVE HYPERPLASIA [None]
  - OBLITERATIVE BRONCHIOLITIS [None]
  - PLEURAL EFFUSION [None]
  - PORTAL HYPERTENSION [None]
  - PYREXIA [None]
  - RENAL FAILURE ACUTE [None]
  - VARICES OESOPHAGEAL [None]
  - WEIGHT DECREASED [None]
